FAERS Safety Report 10174612 (Version 2)
Quarter: 2014Q2

REPORT INFORMATION
  Report Type: Spontaneous
  Country: US (occurrence: US)
  Receive Date: 20140515
  Receipt Date: 20140528
  Transmission Date: 20141212
  Serious: Yes (Death)
  Sender: FDA-Public Use
  Company Number: US-GLAXOSMITHKLINE-A1072283A

PATIENT
  Age: 49 Year
  Sex: Male

DRUGS (6)
  1. VOTRIENT [Suspect]
     Indication: RENAL CANCER
     Dosage: 800MG PER DAY
     Route: 048
     Dates: start: 20140312
  2. OXYCODONE [Concomitant]
  3. OXYCONTIN [Concomitant]
  4. CELEBREX [Concomitant]
  5. PROTONIX [Concomitant]
  6. TIZANIDINE [Concomitant]

REACTIONS (1)
  - Death [Fatal]
